FAERS Safety Report 9874429 (Version 1)
Quarter: 2014Q1

REPORT INFORMATION
  Report Type: Spontaneous
  Country: US (occurrence: US)
  Receive Date: 20140206
  Receipt Date: 20140206
  Transmission Date: 20141002
  Serious: Yes (Other)
  Sender: FDA-Public Use
  Company Number: US-BIOGENIDEC-2014BI010231

PATIENT
  Sex: Male

DRUGS (3)
  1. AVONEX [Suspect]
     Indication: MULTIPLE SCLEROSIS
     Route: 030
     Dates: start: 20010720
  2. DRONABINOL [Concomitant]
     Route: 048
  3. ECOTRIN [Concomitant]
     Route: 048

REACTIONS (10)
  - Carotid artery occlusion [Unknown]
  - Heart valve replacement [Unknown]
  - Cerebrovascular accident [Unknown]
  - Fibromuscular dysplasia [Unknown]
  - Moyamoya disease [Unknown]
  - Convulsion [Unknown]
  - Panic attack [Not Recovered/Not Resolved]
  - Dyspnoea [Not Recovered/Not Resolved]
  - Arthralgia [Not Recovered/Not Resolved]
  - Anxiety [Not Recovered/Not Resolved]
